FAERS Safety Report 7208510-9 (Version None)
Quarter: 2011Q1

REPORT INFORMATION
  Report Type: 
  Country: None (occurrence: None)
  Receive Date: 20110104
  Receipt Date: 20101214
  Transmission Date: 20110831
  Serious: Yes (Hospitalization)
  Sender: FDA-Public Use
  Company Number: US-BAYER-US-2007-022524

PATIENT
  Sex: Female
  Weight: 68.027 kg

DRUGS (7)
  1. FELODIPINE [Concomitant]
     Dosage: DAILY DOSE 5 MG
  2. CALCIUM, VITAMIN D NOS [Concomitant]
     Dosage: 1 TAB(S), 2X/DAY [DAILY DOSE: 2 TAB(S)]
  3. FEXOFENADINE HCL [Concomitant]
     Dosage: DAILY DOSE 180 MG
  4. TELMISARTAN/HYDROCHLOROTHIAZIDE [Concomitant]
     Dosage: 1 TAB(S), 1X/DAY [DAILY DOSE: 1 TAB(S)]
  5. BETASERON [Suspect]
     Dosage: 8 MIU, QOD
     Dates: start: 20070401
  6. MONTELUKAST [Concomitant]
     Dosage: DAILY DOSE 10 MG
  7. BETASERON [Suspect]
     Indication: RELAPSING-REMITTING MULTIPLE SCLEROSIS
     Dosage: 8 MIU, EVERY 2D
     Route: 058
     Dates: start: 20030314, end: 20070122

REACTIONS (5)
  - NIGHT SWEATS [None]
  - BURNING SENSATION [None]
  - PYREXIA [None]
  - ANAEMIA [None]
  - NEOPLASM [None]
